FAERS Safety Report 7022200-7 (Version None)
Quarter: 2010Q3

REPORT INFORMATION
  Report Type: 
  Country: None (occurrence: None)
  Receive Date: 20100928
  Receipt Date: 20100913
  Transmission Date: 20110219
  Serious: Yes (Hospitalization)
  Sender: FDA-Public Use
  Company Number: AUR-APL-2010-02245

PATIENT
  Age: 51 Year
  Sex: Female

DRUGS (4)
  1. SIMVASTATIN [Suspect]
     Indication: ANGIOPATHY
     Dosage: 20MG - DAILY
  2. LORATADINE [Concomitant]
  3. ASASANTIN RETARD 200MG [Concomitant]
  4. TEVETEN HCT [Concomitant]

REACTIONS (6)
  - ABDOMINAL PAIN UPPER [None]
  - ALANINE AMINOTRANSFERASE INCREASED [None]
  - ASPARTATE AMINOTRANSFERASE INCREASED [None]
  - BLOOD LACTATE DEHYDROGENASE INCREASED [None]
  - BREAST PAIN [None]
  - GAMMA-GLUTAMYLTRANSFERASE INCREASED [None]
